FAERS Safety Report 20307624 (Version 1)
Quarter: 2022Q1

REPORT INFORMATION
  Report Type: Spontaneous
  Country: US (occurrence: US)
  Receive Date: 20220107
  Receipt Date: 20220107
  Transmission Date: 20220423
  Serious: No
  Sender: FDA-Public Use
  Company Number: US-BIOVITRUM-2022US00165

PATIENT
  Sex: Male
  Weight: 8 kg

DRUGS (8)
  1. SYNAGIS [Suspect]
     Active Substance: PALIVIZUMAB
     Indication: Premature baby
     Route: 030
  2. SYNAGIS [Suspect]
     Active Substance: PALIVIZUMAB
     Indication: Infantile spasms
  3. SYNAGIS [Suspect]
     Active Substance: PALIVIZUMAB
     Indication: Hypoxic-ischaemic encephalopathy
  4. IBUPROFEN [Concomitant]
     Active Substance: IBUPROFEN
     Dosage: 100 PERCENT POWDER
  5. TYLENOL [Concomitant]
     Active Substance: ACETAMINOPHEN
  6. GLYCOPYRROLATE [Concomitant]
     Active Substance: GLYCOPYRROLATE
     Dosage: 0.2MG/ML VIAL
  7. EPINEPHRINE [Concomitant]
     Active Substance: EPINEPHRINE
  8. ALBUTEROL\IPRATROPIUM [Concomitant]
     Active Substance: ALBUTEROL\IPRATROPIUM

REACTIONS (1)
  - COVID-19 [Recovering/Resolving]
